FAERS Safety Report 8550326-5 (Version None)
Quarter: 2012Q3

REPORT INFORMATION
  Report Type: 
  Country: None (occurrence: None)
  Receive Date: 20120730
  Receipt Date: 20120717
  Transmission Date: 20120928
  Serious: No
  Sender: FDA-Public Use
  Company Number: US-009507513-1207USA006707

PATIENT

DRUGS (1)
  1. CLARITIN [Suspect]
     Indication: ORAL HERPES
     Dosage: UNK, UNKNOWN
     Route: 048

REACTIONS (2)
  - EXPIRED DRUG ADMINISTERED [None]
  - OFF LABEL USE [None]
